FAERS Safety Report 18391890 (Version 1)
Quarter: 2020Q4

REPORT INFORMATION
  Report Type: Spontaneous
  Country: US (occurrence: US)
  Receive Date: 20201016
  Receipt Date: 20201016
  Transmission Date: 20210114
  Serious: Yes (Other)
  Sender: FDA-Public Use
  Company Number: US-MYLANLABS-2020M1086839

PATIENT
  Sex: Male

DRUGS (1)
  1. PREDNISONE. [Suspect]
     Active Substance: PREDNISONE
     Indication: PRODUCT USED FOR UNKNOWN INDICATION
     Dosage: UNK

REACTIONS (14)
  - Muscle spasms [Unknown]
  - Increased appetite [Unknown]
  - Cushingoid [Unknown]
  - Vision blurred [Unknown]
  - Skin atrophy [Unknown]
  - Swelling [Unknown]
  - Acne [Unknown]
  - Eye haemorrhage [Unknown]
  - Fat redistribution [Unknown]
  - Onychoclasis [Unknown]
  - Mood swings [Unknown]
  - Insomnia [Unknown]
  - Onychomycosis [Unknown]
  - Hypertrichosis [Unknown]
